FAERS Safety Report 4789256-3 (Version None)
Quarter: 2005Q4

REPORT INFORMATION
  Report Type: 
  Country: None (occurrence: None)
  Receive Date: 20051005
  Receipt Date: 20050929
  Transmission Date: 20060501
  Serious: Yes (Other)
  Sender: FDA-Public Use
  Company Number: NO-MERCK-0509NOR00032

PATIENT
  Age: 59 Year
  Sex: Female

DRUGS (3)
  1. FOSAMAX [Suspect]
     Indication: OSTEOPOROSIS
     Route: 048
     Dates: start: 20050101
  2. DEXAMETHASONE SODIUM PHOSPHATE [Concomitant]
     Indication: UVEITIS
     Route: 047
  3. PREDNISOLONE [Concomitant]
     Route: 065

REACTIONS (3)
  - UVEITIS [None]
  - VISUAL ACUITY REDUCED [None]
  - VITRITIS [None]
